FAERS Safety Report 26055029 (Version 1)
Quarter: 2025Q4

REPORT INFORMATION
  Report Type: Spontaneous
  Country: EU (occurrence: EU)
  Receive Date: 20251117
  Receipt Date: 20251117
  Transmission Date: 20260118
  Serious: Yes (Hospitalization, Other)
  Sender: NOVARTIS
  Company Number: EU-002147023-NVSC2025LT175304

PATIENT
  Age: 41 Year
  Sex: Female

DRUGS (4)
  1. CYCLOSPORINE [Suspect]
     Active Substance: CYCLOSPORINE
     Indication: Acute graft versus host disease
     Dosage: UNK
     Route: 065
  2. METHYLPREDNISOLONE [Concomitant]
     Active Substance: METHYLPREDNISOLONE
     Indication: Acute graft versus host disease
     Dosage: 2 MG/KG, QD
     Route: 065
  3. RUXOLITINIB [Concomitant]
     Active Substance: RUXOLITINIB
     Indication: Acute graft versus host disease
     Dosage: 10 MG, BID
     Route: 065
  4. DEFIBROTIDE [Concomitant]
     Active Substance: DEFIBROTIDE (BOVINE)
     Indication: Product used for unknown indication
     Dosage: 6.25 MG, Q6H
     Route: 065
     Dates: start: 20241009

REACTIONS (27)
  - Nausea [Not Recovered/Not Resolved]
  - Vomiting [Not Recovered/Not Resolved]
  - Headache [Not Recovered/Not Resolved]
  - Hyperbilirubinaemia [Not Recovered/Not Resolved]
  - Polyomavirus viraemia [Unknown]
  - Thrombocytopenia [Not Recovered/Not Resolved]
  - Chronic hepatitis [Unknown]
  - Enterococcal infection [Unknown]
  - Sjogren^s syndrome [Unknown]
  - Hypokalaemia [Unknown]
  - Hypoalbuminaemia [Not Recovered/Not Resolved]
  - Hepatic failure [Not Recovered/Not Resolved]
  - Decreased appetite [Unknown]
  - Immunosuppression [Unknown]
  - Rotavirus infection [Unknown]
  - Hypernatraemia [Unknown]
  - Haemochromatosis [Unknown]
  - Cytomegalovirus infection [Unknown]
  - Weight decreased [Unknown]
  - Fibrosis [Unknown]
  - Dysuria [Recovering/Resolving]
  - Haematuria [Recovering/Resolving]
  - Pyrexia [Unknown]
  - Dry mouth [Recovering/Resolving]
  - Cystitis [Unknown]
  - Dry eye [Recovering/Resolving]
  - Rash [Recovering/Resolving]
